FAERS Safety Report 4347457-2 (Version None)
Quarter: 2004Q2

REPORT INFORMATION
  Report Type: 
  Country: None (occurrence: None)
  Receive Date: 20040422
  Receipt Date: 20040405
  Transmission Date: 20050107
  Serious: Yes (Other)
  Sender: FDA-Public Use
  Company Number: USA030740780

PATIENT
  Age: 46 Year
  Sex: Male

DRUGS (6)
  1. FORTEO [Suspect]
     Indication: OSTEOPOROSIS
     Dosage: 20 UG/1 DAY
     Dates: start: 20030501
  2. OXYCONTIN [Concomitant]
  3. DECADRON [Concomitant]
  4. HYDROCORTISONE [Concomitant]
  5. REGLAN [Concomitant]
  6. FLEXERIL [Concomitant]

REACTIONS (8)
  - COLONIC STENOSIS [None]
  - INJECTION SITE HAEMORRHAGE [None]
  - INJECTION SITE INDURATION [None]
  - INJECTION SITE INFLAMMATION [None]
  - INJECTION SITE PAIN [None]
  - IRRITABLE BOWEL SYNDROME [None]
  - PHARMACEUTICAL PRODUCT COMPLAINT [None]
  - PROCEDURAL COMPLICATION [None]
